FAERS Safety Report 7371201-8 (Version None)
Quarter: 2011Q1

REPORT INFORMATION
  Report Type: 
  Country: None (occurrence: None)
  Receive Date: 20110322
  Receipt Date: 20110322
  Transmission Date: 20110831
  Serious: Yes (Other)
  Sender: FDA-Public Use
  Company Number: None

PATIENT
  Sex: Male
  Weight: 70.5 kg

DRUGS (3)
  1. HORSE ATG [Suspect]
     Indication: ANAEMIA
     Dosage: 40MG/KG/DOSE DAILY IV DRIP
     Route: 042
     Dates: start: 20110114, end: 20110120
  2. CYCLOSPORINE [Concomitant]
  3. PREDNISONE [Concomitant]

REACTIONS (4)
  - INFUSION RELATED REACTION [None]
  - RASH [None]
  - MUSCULAR WEAKNESS [None]
  - PERIPHERAL MOTOR NEUROPATHY [None]
